FAERS Safety Report 6609465-8 (Version None)
Quarter: 2010Q1

REPORT INFORMATION
  Report Type: 
  Country: None (occurrence: None)
  Receive Date: 20100302
  Receipt Date: 20100218
  Transmission Date: 20100710
  Serious: Yes (Other)
  Sender: FDA-Public Use
  Company Number: US-JNJFOC-20091206855

PATIENT
  Sex: Female

DRUGS (3)
  1. EXTRA STRENGTH TYLENOL PM [Suspect]
     Indication: INSOMNIA
     Route: 048
  2. UNIRETIC [Concomitant]
     Indication: HYPERTENSION
     Dosage: 15/12.5 MG ONCE DAILY
  3. TOPROL-XL [Concomitant]
     Indication: HYPERTENSION

REACTIONS (4)
  - DRUG INEFFECTIVE [None]
  - DYSURIA [None]
  - INSOMNIA [None]
  - URINARY TRACT OBSTRUCTION [None]
